FAERS Safety Report 6812986-6 (Version None)
Quarter: 2010Q3

REPORT INFORMATION
  Report Type: 
  Country: None (occurrence: None)
  Receive Date: 20100701
  Receipt Date: 20100623
  Transmission Date: 20110219
  Serious: Yes (Hospitalization)
  Sender: FDA-Public Use
  Company Number: JP-PFIZER INC-2010082255

PATIENT
  Age: 63 Year
  Sex: Male

DRUGS (1)
  1. AMLODIN [Suspect]

REACTIONS (1)
  - BLOOD CREATINE PHOSPHOKINASE INCREASED [None]
